FAERS Safety Report 23269870 (Version 2)
Quarter: 2023Q4

REPORT INFORMATION
  Report Type: Spontaneous
  Country: US (occurrence: US)
  Receive Date: 20231207
  Receipt Date: 20231211
  Transmission Date: 20240109
  Serious: No
  Sender: FDA-Public Use
  Company Number: US-GLAXOSMITHKLINE-US2023AMR169174

PATIENT
  Sex: Male

DRUGS (3)
  1. ZEJULA [Suspect]
     Active Substance: NIRAPARIB
     Indication: Spinal cord compression
     Dosage: 200 MG, QD
  2. ZEJULA [Suspect]
     Active Substance: NIRAPARIB
     Indication: Prostate cancer
  3. ZEJULA [Suspect]
     Active Substance: NIRAPARIB
     Indication: Metastases to bone

REACTIONS (2)
  - Fatigue [Unknown]
  - Off label use [Unknown]
